FAERS Safety Report 5209425-8 (Version None)
Quarter: 2007Q1

REPORT INFORMATION
  Report Type: 
  Country: None (occurrence: None)
  Receive Date: 20070116
  Receipt Date: 20070102
  Transmission Date: 20070707
  Serious: Yes (Death, Hospitalization)
  Sender: FDA-Public Use
  Company Number: US-ELI_LILLY_AND_COMPANY-US200608004989

PATIENT
  Age: 86 Year
  Sex: Female
  Weight: 53.514 kg

DRUGS (9)
  1. FORTEO [Suspect]
     Indication: OSTEOPOROSIS
     Dosage: 20 U, DAILY (1/D)
     Dates: start: 20060707
  2. PREDNISONE TAB [Concomitant]
     Dosage: 15 MG, DAILY (1/D)
  3. TIAZAC [Concomitant]
     Dosage: 240 MG, DAILY (1/D)
  4. FOLIC ACID [Concomitant]
     Dosage: 1 MG, DAILY (1/D)
  5. DARVOCET-N 100 [Concomitant]
     Dosage: UNK, AS NEEDED
  6. DIGOXIN [Concomitant]
     Dosage: 0.125 MG, DAILY (1/D)
  7. HUMAN INSULIN (RDNA ORIGIN) [Suspect]
  8. DILTIAZEM HCL [Concomitant]
  9. ASPIRIN [Concomitant]
     Dosage: 325 MG, DAILY (1/D)

REACTIONS (17)
  - ARTHRALGIA [None]
  - ARTHROPATHY [None]
  - BILE DUCT STONE [None]
  - CHOLELITHIASIS [None]
  - DEEP VEIN THROMBOSIS [None]
  - ENCEPHALOPATHY [None]
  - ESCHERICHIA INFECTION [None]
  - FEELING ABNORMAL [None]
  - GAIT DISTURBANCE [None]
  - HYPOGLYCAEMIA [None]
  - JOINT SWELLING [None]
  - MUSCULOSKELETAL DISCOMFORT [None]
  - NAUSEA [None]
  - PANCREATITIS [None]
  - RENAL FAILURE [None]
  - SYNOVITIS [None]
  - VOMITING [None]
